FAERS Safety Report 10880472 (Version 1)
Quarter: 2015Q1

REPORT INFORMATION
  Report Type: Spontaneous
  Country: CH (occurrence: CH)
  Receive Date: 20150303
  Receipt Date: 20150303
  Transmission Date: 20150721
  Serious: Yes (Other)
  Sender: FDA-Public Use
  Company Number: CH-ROCHE-1538753

PATIENT
  Age: 38 Year
  Sex: Female
  Weight: 72 kg

DRUGS (7)
  1. IFOSFAMIDE. [Suspect]
     Active Substance: IFOSFAMIDE
     Indication: HODGKIN^S DISEASE
     Route: 042
     Dates: start: 20150203, end: 20150205
  2. NEULASTA [Suspect]
     Active Substance: PEGFILGRASTIM
     Indication: LYMPHOMA
     Dosage: DAILY DOSE: 6 MG/0.6 ML
     Route: 058
     Dates: start: 20150205, end: 20150205
  3. UROMITEXAN [Suspect]
     Active Substance: MESNA
     Indication: HODGKIN^S DISEASE
     Route: 042
     Dates: start: 20150203, end: 20150205
  4. RITUXIMAB [Suspect]
     Active Substance: RITUXIMAB
     Indication: HODGKIN^S DISEASE
     Route: 042
     Dates: start: 20150203, end: 20150205
  5. NEULASTA [Suspect]
     Active Substance: PEGFILGRASTIM
     Indication: NEUTROPENIA
  6. ETOPOSIDE. [Suspect]
     Active Substance: ETOPOSIDE
     Indication: HODGKIN^S DISEASE
     Route: 042
     Dates: start: 20150203, end: 20150205
  7. CARBOPLATIN. [Suspect]
     Active Substance: CARBOPLATIN
     Indication: HODGKIN^S DISEASE
     Route: 042
     Dates: start: 20150203, end: 20150205

REACTIONS (2)
  - Agranulocytosis [Unknown]
  - Neutrophil count abnormal [Recovered/Resolved]

NARRATIVE: CASE EVENT DATE: 20150211
